FAERS Safety Report 7138046-5 (Version None)
Quarter: 2010Q4

REPORT INFORMATION
  Report Type: 
  Country: None (occurrence: None)
  Receive Date: 20101104
  Receipt Date: 20100208
  Transmission Date: 20110411
  Serious: Yes (Other)
  Sender: FDA-Public Use
  Company Number: US-WYE-H13549710

PATIENT
  Age: 53 Year
  Sex: Female
  Weight: 66.28 kg

DRUGS (1)
  1. ADVIL COLD AND SINUS [Suspect]
     Indication: SINUS HEADACHE
     Dosage: ONE CAPLET, ORAL
     Route: 048
     Dates: end: 20050101

REACTIONS (3)
  - ENERGY INCREASED [None]
  - HYPERVIGILANCE [None]
  - THERAPEUTIC RESPONSE UNEXPECTED [None]
